FAERS Safety Report 24223954 (Version 1)
Quarter: 2024Q3

REPORT INFORMATION
  Report Type: Spontaneous
  Country: US (occurrence: None)
  Receive Date: 20240817
  Receipt Date: 20240817
  Transmission Date: 20241017
  Serious: No
  Sender: Public
  Company Number: None

PATIENT
  Sex: Male

DRUGS (1)
  1. PROMACTA [Suspect]
     Active Substance: ELTROMBOPAG OLAMINE
     Indication: Immune thrombocytopenia
     Dosage: ORAL
     Route: 048

REACTIONS (7)
  - Myalgia [None]
  - Fatigue [None]
  - Blood sodium decreased [None]
  - Cough [None]
  - Peripheral swelling [None]
  - Cardiac failure [None]
  - Aneurysm [None]
